FAERS Safety Report 13539165 (Version 1)
Quarter: 2017Q2

REPORT INFORMATION
  Report Type: Spontaneous
  Country: CH (occurrence: CH)
  Receive Date: 20170512
  Receipt Date: 20170512
  Transmission Date: 20170830
  Serious: Yes (Hospitalization)
  Sender: FDA-Public Use
  Company Number: CH-ROCHE-1933491

PATIENT
  Age: 27 Year
  Sex: Male
  Weight: 75 kg

DRUGS (8)
  1. SOLU-MEDROL [Suspect]
     Active Substance: METHYLPREDNISOLONE SODIUM SUCCINATE
     Indication: HYPERSENSITIVITY
     Route: 042
     Dates: start: 20170409
  2. TAVEGYL [Suspect]
     Active Substance: CLEMASTINE FUMARATE
     Indication: HYPERSENSITIVITY
     Route: 042
     Dates: start: 20170409
  3. DORMICUM (MIDAZOLAM HYDROCHLORIDE) [Suspect]
     Active Substance: MIDAZOLAM HYDROCHLORIDE
     Indication: STATUS EPILEPTICUS
     Route: 045
     Dates: start: 20170409, end: 20170410
  4. NORVIR [Suspect]
     Active Substance: RITONAVIR
     Indication: HIV INFECTION
     Route: 048
     Dates: start: 201008
  5. ZANTAC [Suspect]
     Active Substance: RANITIDINE HYDROCHLORIDE
     Indication: HYPERSENSITIVITY
     Route: 065
     Dates: start: 20170409
  6. VALIUM [Suspect]
     Active Substance: DIAZEPAM
     Indication: STATUS EPILEPTICUS
     Route: 041
     Dates: start: 20170409
  7. REYATAZ [Suspect]
     Active Substance: ATAZANAVIR SULFATE
     Indication: HIV INFECTION
     Route: 065
     Dates: start: 201008
  8. TRUVADA [Suspect]
     Active Substance: EMTRICITABINE\TENOFOVIR DISOPROXIL FUMARATE
     Indication: HIV INFECTION
     Dosage: TENOFOVIR 245 MG, EMTRICITABIN 200 MG
     Route: 048
     Dates: start: 201008

REACTIONS (4)
  - Lactic acidosis [None]
  - Hypersensitivity [Recovered/Resolved]
  - Distributive shock [Recovered/Resolved]
  - Metabolic acidosis [None]

NARRATIVE: CASE EVENT DATE: 20170409
